FAERS Safety Report 20623410 (Version 3)
Quarter: 2022Q3

REPORT INFORMATION
  Report Type: Spontaneous
  Country: US (occurrence: US)
  Receive Date: 20220322
  Receipt Date: 20220902
  Transmission Date: 20221027
  Serious: No
  Sender: FDA-Public Use
  Company Number: US-THERATECHNOLOGIES INC.-2022-THE-IBA-000018

PATIENT

DRUGS (3)
  1. TROGARZO [Suspect]
     Active Substance: IBALIZUMAB-UIYK
     Indication: HIV infection
     Dosage: 200 MG, EVERY 2 WEEKS
     Route: 042
     Dates: start: 20220105
  2. RUKOBIA [Suspect]
     Active Substance: FOSTEMSAVIR TROMETHAMINE
     Indication: HIV infection
     Dosage: 600 MG, BID
     Route: 048
     Dates: start: 20220105, end: 20220117
  3. DESCOVY [Concomitant]
     Active Substance: EMTRICITABINE\TENOFOVIR ALAFENAMIDE FUMARATE
     Indication: Product used for unknown indication

REACTIONS (4)
  - Rash [Recovered/Resolved]
  - Blood glucose increased [Unknown]
  - Pruritus [Unknown]
  - Inappropriate schedule of product administration [Unknown]

NARRATIVE: CASE EVENT DATE: 20220115
